FAERS Safety Report 7490743-8 (Version None)
Quarter: 2011Q2

REPORT INFORMATION
  Report Type: 
  Country: None (occurrence: None)
  Receive Date: 20110519
  Receipt Date: 20091119
  Transmission Date: 20111010
  Serious: Yes (Death, Other)
  Sender: FDA-Public Use
  Company Number: US-BAYER-200939886NA

PATIENT
  Age: 65 Year
  Sex: Male
  Weight: 53 kg

DRUGS (14)
  1. HYDRALAZINE HCL [Concomitant]
     Dosage: UNK
     Route: 048
     Dates: start: 20020101
  2. HESPAN IN EXCEL PLASTIC CONTAINER [Concomitant]
     Dosage: 500CC
  3. TRASYLOL [Suspect]
     Indication: MITRAL VALVE REPAIR
  4. HEPARIN [Concomitant]
     Dosage: UNK
     Route: 042
     Dates: start: 20020306
  5. VANCOMYCIN [Concomitant]
     Dosage: UNK
     Route: 042
     Dates: start: 20020306
  6. MILRINONE [Concomitant]
     Dosage: UNK
     Route: 042
     Dates: start: 20020306
  7. ISORDIL [Concomitant]
     Dosage: UNK
     Route: 048
     Dates: start: 20020101
  8. CATAPRES [Concomitant]
     Dosage: UNK
     Route: 048
     Dates: start: 20020101
  9. ALBUMIN (HUMAN) [Concomitant]
     Dosage: 250CC
     Route: 042
  10. NITROGLYCERIN [Concomitant]
     Dosage: UNK
     Route: 042
     Dates: start: 20020306
  11. INDOCIN [Concomitant]
     Dosage: LONG TERM
     Route: 048
  12. TRASYLOL [Suspect]
     Indication: CORONARY ARTERY BYPASS
     Dosage: PUMP PRIME DOSE: 200CC;LOADING DOSE-220CC FOLLOWED BY 50CC/HOUR INFUSION
     Route: 042
     Dates: start: 20020306, end: 20020306
  13. CARDIZEM [Concomitant]
     Dosage: LONG TERM
     Route: 048
  14. NORVASC [Concomitant]
     Dosage: UNK
     Route: 048
     Dates: start: 20020101

REACTIONS (7)
  - RENAL INJURY [None]
  - DEATH [None]
  - RENAL FAILURE [None]
  - INJURY [None]
  - PAIN [None]
  - MYOCARDIAL INFARCTION [None]
  - UNEVALUABLE EVENT [None]
